FAERS Safety Report 5831838-1 (Version None)
Quarter: 2008Q3

REPORT INFORMATION
  Report Type: 
  Country: None (occurrence: None)
  Receive Date: 20080731
  Receipt Date: 20080716
  Transmission Date: 20090109
  Serious: Yes (Life-Threatening, Hospitalization)
  Sender: FDA-Public Use
  Company Number: 2008AL008379

PATIENT
  Age: 83 Year
  Sex: Male

DRUGS (1)
  1. DIGOXIN [Suspect]
     Indication: ARRHYTHMIA
     Dosage: 0.125MG  DAILY PO;  OVER 1 YEAR
     Route: 048

REACTIONS (3)
  - CARDIAC PACEMAKER INSERTION [None]
  - DIZZINESS [None]
  - FALL [None]
